FAERS Safety Report 5679278-2 (Version None)
Quarter: 2008Q1

REPORT INFORMATION
  Report Type: 
  Country: None (occurrence: None)
  Receive Date: 20080325
  Receipt Date: 20080318
  Transmission Date: 20080703
  Serious: Yes (Death)
  Sender: FDA-Public Use
  Company Number: US-SANOFI-SYNTHELABO-A03200800351

PATIENT
  Sex: Male

DRUGS (2)
  1. PLAVIX [Suspect]
     Indication: STENT PLACEMENT
     Dosage: 600MG POST STENTING
     Route: 048
     Dates: start: 20080108, end: 20080108
  2. PLAVIX [Suspect]
     Route: 048
     Dates: start: 20080101

REACTIONS (2)
  - OVERDOSE [None]
  - THROMBOSIS IN DEVICE [None]
